FAERS Safety Report 10057929 (Version 2)
Quarter: 2014Q3

REPORT INFORMATION
  Report Type: Spontaneous
  Country: JP (occurrence: JP)
  Receive Date: 20140404
  Receipt Date: 20140718
  Transmission Date: 20150326
  Serious: Yes (Hospitalization, Disabling, Other)
  Sender: FDA-Public Use
  Company Number: JP-009507513-1403JPN013892

PATIENT
  Age: 56 Year
  Sex: Male
  Weight: 54 kg

DRUGS (11)
  1. SYMBICORT [Suspect]
     Active Substance: BUDESONIDE\FORMOTEROL FUMARATE DIHYDRATE
     Indication: ASTHMA
     Dosage: 1 PUFF PER DOSE, BID
     Route: 055
     Dates: start: 20130825
  2. ACYCLOVIR. [Concomitant]
     Active Substance: ACYCLOVIR
     Dosage: DAILY DOSAGE UNKNOWN
     Route: 041
  3. ALEVIATIN [Concomitant]
     Active Substance: PHENYTOIN SODIUM
     Dosage: DAILY DOSAGE UNKNOWN
     Route: 042
  4. DECADRON [Suspect]
     Active Substance: DEXAMETHASONE
     Dosage: 6.6 MG, BID
     Route: 042
     Dates: start: 20130821, end: 20130821
  5. DECADRON [Suspect]
     Active Substance: DEXAMETHASONE
     Indication: ENCEPHALITIS VIRAL
     Dosage: 6.6 MG, BID
     Route: 042
     Dates: start: 20130824, end: 20130824
  6. SOLDEM 3A [Concomitant]
     Active Substance: CARBOHYDRATES\POTASSIUM CHLORIDE\SODIUM CHLORIDE\SODIUM LACTATE
     Dosage: DAILY DOSAGE UNKNOWN
     Route: 041
  7. ALEVIATIN [Concomitant]
     Active Substance: PHENYTOIN SODIUM
     Dosage: DAILY DOSAGE UNKNOWN
     Route: 048
  8. TAKEPRON [Concomitant]
     Active Substance: LANSOPRAZOLE
     Dosage: DAILY DOSAGE UNKNOWN
     Route: 048
  9. DECADRON [Suspect]
     Active Substance: DEXAMETHASONE
     Dosage: 6.6 MG, QID
     Route: 042
     Dates: start: 20130822, end: 20130823
  10. MEROPENEM. [Concomitant]
     Active Substance: MEROPENEM
     Dosage: DAILY DOSAGE UNKNOWN
     Route: 041
  11. LACTEC [Concomitant]
     Active Substance: CALCIUM CHLORIDE ANHYDROUS\POTASSIUM CHLORIDE\SODIUM CHLORIDE\SODIUM LACTATE
     Dosage: DAILY DOSAGE UNKNOWN
     Route: 042

REACTIONS (1)
  - Osteonecrosis [Unknown]

NARRATIVE: CASE EVENT DATE: 20130830
